FAERS Safety Report 21642636 (Version 2)
Quarter: 2022Q4

REPORT INFORMATION
  Report Type: Spontaneous
  Country: US (occurrence: US)
  Receive Date: 20221125
  Receipt Date: 20221126
  Transmission Date: 20230113
  Serious: No
  Sender: FDA-Public Use
  Company Number: US-TEVA-2022-US-2825720

PATIENT
  Age: 87 Year
  Sex: Female

DRUGS (1)
  1. MUPIROCIN [Suspect]
     Active Substance: MUPIROCIN
     Indication: Peripheral venous disease
     Route: 065
     Dates: start: 20221102

REACTIONS (5)
  - Feeling abnormal [Unknown]
  - Adverse drug reaction [Unknown]
  - Pain [Recovered/Resolved]
  - Product prescribing issue [Unknown]
  - Pruritus [Unknown]

NARRATIVE: CASE EVENT DATE: 20221102
